FAERS Safety Report 21948582 (Version 1)
Quarter: 2023Q1

REPORT INFORMATION
  Report Type: Spontaneous
  Country: GB (occurrence: GB)
  Receive Date: 20230203
  Receipt Date: 20230203
  Transmission Date: 20230417
  Serious: Yes (Other)
  Sender: FDA-Public Use
  Company Number: GB-ROCHE-3256583

PATIENT
  Sex: Male

DRUGS (20)
  1. CARBOPLATIN [Suspect]
     Active Substance: CARBOPLATIN
     Indication: Richter^s syndrome
     Dosage: UNKNOWN
     Route: 065
     Dates: start: 20200111, end: 20210101
  2. CARBOPLATIN [Suspect]
     Active Substance: CARBOPLATIN
     Dosage: UNKNOWN
     Route: 050
     Dates: start: 20200111, end: 20210101
  3. BENDAMUSTINE [Suspect]
     Active Substance: BENDAMUSTINE
     Indication: Richter^s syndrome
     Dosage: UNKNOWN
     Route: 042
     Dates: start: 20210108, end: 20210109
  4. CISPLATIN [Suspect]
     Active Substance: CISPLATIN
     Indication: Richter^s syndrome
     Dosage: UNKNOWN
     Route: 065
     Dates: start: 20200111, end: 20210101
  5. CYCLOPHOSPHAMIDE [Suspect]
     Active Substance: CYCLOPHOSPHAMIDE
     Indication: Richter^s syndrome
     Dosage: UNKNOWN
     Route: 065
     Dates: start: 20150109, end: 20160102
  6. CYCLOPHOSPHAMIDE [Suspect]
     Active Substance: CYCLOPHOSPHAMIDE
     Dosage: UNKNOWN
     Route: 065
     Dates: start: 20200106, end: 20200110
  7. DOXORUBICIN HYDROCHLORIDE [Suspect]
     Active Substance: DOXORUBICIN HYDROCHLORIDE
     Indication: Richter^s syndrome
     Dosage: UNKNOWN
     Route: 065
     Dates: start: 20200106, end: 20200110
  8. FLUDARABINE [Suspect]
     Active Substance: FLUDARABINE PHOSPHATE
     Indication: Richter^s syndrome
     Dosage: UNKNOWN
     Route: 065
     Dates: start: 20150109, end: 20160102
  9. GEMCITABINE [Suspect]
     Active Substance: GEMCITABINE
     Indication: Richter^s syndrome
     Dosage: UNKNOWN
     Route: 065
     Dates: start: 20200111, end: 20210101
  10. IBRUTINIB [Suspect]
     Active Substance: IBRUTINIB
     Indication: Richter^s syndrome
     Dosage: UNKNOWN
     Route: 065
     Dates: start: 20200106, end: 20201110
  11. IBRUTINIB [Suspect]
     Active Substance: IBRUTINIB
     Dosage: UNKNOWN
     Route: 065
     Dates: start: 20200106, end: 20200110
  12. OXALIPLATIN [Suspect]
     Active Substance: OXALIPLATIN
     Indication: Richter^s syndrome
     Dosage: UNKNOWN
     Route: 065
     Dates: start: 20200111, end: 20210101
  13. POLATUZUMAB VEDOTIN [Suspect]
     Active Substance: POLATUZUMAB VEDOTIN
     Indication: Richter^s syndrome
     Dosage: UNKNOWN
     Route: 065
     Dates: start: 20210108, end: 20210109
  14. PREDNISONE [Suspect]
     Active Substance: PREDNISONE
     Indication: Richter^s syndrome
     Dosage: UNKNOWN
     Route: 065
     Dates: start: 20200106, end: 20200110
  15. RITUXIMAB [Suspect]
     Active Substance: RITUXIMAB
     Indication: Richter^s syndrome
     Dosage: UNKNOWN
     Route: 065
     Dates: start: 20190111, end: 20200106
  16. RITUXIMAB [Suspect]
     Active Substance: RITUXIMAB
     Dosage: UNKNOWN
     Route: 065
     Dates: start: 20210108, end: 20210109
  17. RITUXIMAB [Suspect]
     Active Substance: RITUXIMAB
     Dosage: UNKNOWN
     Route: 065
     Dates: start: 20200106, end: 20200110
  18. RITUXIMAB [Suspect]
     Active Substance: RITUXIMAB
     Dosage: UNKNOWN
     Route: 065
     Dates: start: 20150109, end: 20160201
  19. VENETOCLAX [Suspect]
     Active Substance: VENETOCLAX
     Indication: Richter^s syndrome
     Dosage: UNKNOWN
     Route: 065
     Dates: start: 20190111, end: 20200106
  20. VINCRISTINE [Suspect]
     Active Substance: VINCRISTINE
     Indication: Richter^s syndrome
     Dosage: UNKNOWN
     Route: 065
     Dates: start: 20200106, end: 20200110

REACTIONS (1)
  - Malignant neoplasm progression [Unknown]
